FAERS Safety Report 4390350-X (Version None)
Quarter: 2004Q2

REPORT INFORMATION
  Report Type: 
  Country: None (occurrence: None)
  Receive Date: 20040630
  Receipt Date: 20040616
  Transmission Date: 20050107
  Serious: Yes (Hospitalization)
  Sender: FDA-Public Use
  Company Number: 04P-163-0263869-00

PATIENT
  Age: 40 Year
  Sex: Female

DRUGS (10)
  1. HUMIRA [Suspect]
     Indication: RHEUMATOID ARTHRITIS
     Dosage: 40 MG, 1 IN 2 WK, SUBCUTANEOUS
     Route: 058
     Dates: start: 20030401, end: 20040401
  2. METHOTREXATE SODIUM [Concomitant]
  3. OXYCOCET [Concomitant]
  4. CELECOXIB [Concomitant]
  5. VALSARTAN [Concomitant]
  6. RABEPRAZOLE SODIUM [Concomitant]
  7. ALENDRONATE SODIUM [Concomitant]
  8. FOLIC ACID [Concomitant]
  9. HYDROXYCHLOROQUINE PHOSPHATE [Concomitant]
  10. PREDNISONE [Concomitant]

REACTIONS (7)
  - APHASIA [None]
  - DEPRESSION [None]
  - FALL [None]
  - HUMERUS FRACTURE [None]
  - HYPOTENSION [None]
  - LUMBAR PUNCTURE HEADACHE [None]
  - PACHYMENINGITIS [None]
